FAERS Safety Report 17670073 (Version 1)
Quarter: 2020Q2

REPORT INFORMATION
  Report Type: Spontaneous
  Country: CA (occurrence: CA)
  Receive Date: 20200415
  Receipt Date: 20200415
  Transmission Date: 20200713
  Serious: Yes (Life-Threatening)
  Sender: FDA-Public Use
  Company Number: CA-ROCHE-2581967

PATIENT
  Age: 34 Year
  Sex: Male
  Weight: 59 kg

DRUGS (1)
  1. CLONAZEPAM. [Suspect]
     Active Substance: CLONAZEPAM
     Indication: INSOMNIA
     Route: 048

REACTIONS (18)
  - Constipation [Unknown]
  - Flatulence [Unknown]
  - Paraesthesia [Unknown]
  - Drug intolerance [Unknown]
  - Illness anxiety disorder [Unknown]
  - Anxiety [Unknown]
  - Salivary hypersecretion [Unknown]
  - Abdominal distension [Unknown]
  - Cognitive disorder [Unknown]
  - Decreased appetite [Unknown]
  - Fatigue [Unknown]
  - Food allergy [Unknown]
  - Insomnia [Unknown]
  - Gastrointestinal disorder [Unknown]
  - Memory impairment [Unknown]
  - Weight decreased [Unknown]
  - Feeling abnormal [Unknown]
  - Withdrawal syndrome [Unknown]
